FAERS Safety Report 16938138 (Version 6)
Quarter: 2022Q2

REPORT INFORMATION
  Report Type: Report from Study
  Country: None (occurrence: US)
  Receive Date: 20191018
  Receipt Date: 20220411
  Transmission Date: 20220721
  Serious: Yes (Life-Threatening, Hospitalization)
  Sender: FDA-Public Use
  Company Number: US-AKCEA THERAPEUTICS-2019IS001734

PATIENT
  Age: 70 Year
  Sex: Female

DRUGS (2)
  1. TEGSEDI [Suspect]
     Active Substance: INOTERSEN SODIUM
     Indication: Hereditary neuropathic amyloidosis
     Route: 058
     Dates: start: 20190501, end: 20200830
  2. DEVICE [Suspect]
     Active Substance: DEVICE

REACTIONS (10)
  - Chills [Recovered/Resolved]
  - Blood lactic acid abnormal [Unknown]
  - Palpitations [Unknown]
  - Cyanosis [Recovered/Resolved]
  - Drug hypersensitivity [Recovered/Resolved]
  - Orthostatic hypotension [Unknown]
  - Nausea [Recovered/Resolved]
  - Dizziness postural [Recovering/Resolving]
  - Dyspnoea [Recovered/Resolved]
  - Asthenia [Recovered/Resolved]

NARRATIVE: CASE EVENT DATE: 20191002
